FAERS Safety Report 7389121-1 (Version None)
Quarter: 2011Q1

REPORT INFORMATION
  Report Type: 
  Country: None (occurrence: None)
  Receive Date: 20110329
  Receipt Date: 20110329
  Transmission Date: 20110831
  Serious: Yes (Other)
  Sender: FDA-Public Use
  Company Number: None

PATIENT
  Age: 63 Year
  Sex: Male
  Weight: 86.1834 kg

DRUGS (2)
  1. ARM HAMMER TOOTHPASTE W/BAKING POWDER + PEROXIDE [Suspect]
     Dosage: PEASIZE 1X DAY
     Dates: start: 20110220
  2. ARM HAMMER TOOTHPASTE W/BAKING POWDER + PEROXIDE [Suspect]
     Dosage: PEASIZE 1X DAY
     Dates: start: 20110228

REACTIONS (2)
  - SKIN EXFOLIATION [None]
  - THERMAL BURN [None]
